FAERS Safety Report 19954433 (Version 1)
Quarter: 2021Q4

REPORT INFORMATION
  Report Type: Spontaneous
  Country: CN (occurrence: CN)
  Receive Date: 20211013
  Receipt Date: 20211013
  Transmission Date: 20220304
  Serious: Yes (Other)
  Sender: FDA-Public Use
  Company Number: CN-ABBVIE-21K-035-4117917-00

PATIENT
  Age: 74 Year
  Sex: Male

DRUGS (1)
  1. VALPROATE SODIUM [Suspect]
     Active Substance: VALPROATE SODIUM
     Indication: Cerebral infarction
     Route: 048
     Dates: start: 20190101, end: 20190103

REACTIONS (2)
  - Monocyte count decreased [Unknown]
  - Lymphopenia [Recovering/Resolving]

NARRATIVE: CASE EVENT DATE: 20190103
